FAERS Safety Report 8578257 (Version 2)
Quarter: 2012Q4

REPORT INFORMATION
  Report Type: 
  Country: US (occurrence: US)
  Receive Date: 20120524
  Receipt Date: 20121026
  Transmission Date: 20130627
  Serious: Yes (Hospitalization)
  Sender: FDA-Public Use
  Company Number: US-ASTRAZENECA-2012SE23112

PATIENT
  Age: 66 Year
  Sex: Female

DRUGS (2)
  1. CRESTOR [Suspect]
     Route: 048
  2. COUMADIN [Concomitant]

REACTIONS (2)
  - Road traffic accident [Unknown]
  - Joint injury [Unknown]
